FAERS Safety Report 23031953 (Version 7)
Quarter: 2025Q4

REPORT INFORMATION
  Report Type: Report from Study
  Country: CA (occurrence: CA)
  Receive Date: 20231005
  Receipt Date: 20251127
  Transmission Date: 20260117
  Serious: Yes (Hospitalization, Other)
  Sender: TAKEDA
  Company Number: CA-TAKEDA-2023TUS094066

PATIENT
  Age: 71 Year
  Sex: Female

DRUGS (2)
  1. VEDOLIZUMAB [Suspect]
     Active Substance: VEDOLIZUMAB
     Indication: Crohn^s disease
     Dosage: 300 MILLIGRAM
  2. VEDOLIZUMAB [Suspect]
     Active Substance: VEDOLIZUMAB
     Indication: Crohn^s disease
     Dosage: 108 MILLIGRAM, Q2WEEKS
     Dates: start: 20240102

REACTIONS (10)
  - Erosive oesophagitis [Unknown]
  - Hiatus hernia [Unknown]
  - Tooth abscess [Unknown]
  - Diarrhoea [Unknown]
  - Frequent bowel movements [Unknown]
  - Malaise [Unknown]
  - Asthenia [Unknown]
  - Defaecation urgency [Unknown]
  - Abdominal pain [Unknown]
  - Fatigue [Unknown]
